FAERS Safety Report 6139632-1 (Version None)
Quarter: 2009Q1

REPORT INFORMATION
  Report Type: 
  Country: None (occurrence: None)
  Receive Date: 20090330
  Receipt Date: 20080610
  Transmission Date: 20090719
  Serious: Yes (Hospitalization, Other)
  Sender: FDA-Public Use
  Company Number: 172701USA

PATIENT
  Sex: Female

DRUGS (1)
  1. AMOXICILLIN [Suspect]
     Dates: start: 20050329

REACTIONS (5)
  - BLINDNESS [None]
  - DRY EYE [None]
  - DRY MOUTH [None]
  - SCAR [None]
  - STEVENS-JOHNSON SYNDROME [None]
